FAERS Safety Report 9013950 (Version 1)
Quarter: 2013Q1

REPORT INFORMATION
  Report Type: Spontaneous
  Country: US (occurrence: None)
  Receive Date: 20130109
  Receipt Date: 20130109
  Transmission Date: 20140127
  Serious: No
  Sender: FDA-Public Use
  Company Number: None

PATIENT
  Age: 19 Year
  Sex: Female
  Weight: 50.8 kg

DRUGS (2)
  1. VANCOMYCIN, 5 GRAMS, HOSPIRA [Suspect]
     Route: 042
     Dates: start: 20121030, end: 20121105
  2. VANCOMYCIN, 1 GRAM, HOSPIRAL [Suspect]
     Route: 042
     Dates: start: 20121030, end: 20121105

REACTIONS (2)
  - Urticaria [None]
  - Infusion related reaction [None]
